FAERS Safety Report 5227139-5 (Version None)
Quarter: 2007Q1

REPORT INFORMATION
  Report Type: 
  Country: None (occurrence: None)
  Receive Date: 20070130
  Receipt Date: 20070115
  Transmission Date: 20070707
  Serious: Yes (Death)
  Sender: FDA-Public Use
  Company Number: T200700069

PATIENT
  Age: 26 Year
  Sex: Female
  Weight: 51 kg

DRUGS (8)
  1. MORPHINE [Suspect]
     Indication: PAIN
     Dosage: 5 MG, SINGLE, INTRAVENOUS; SEE IMAGE
     Route: 042
  2. FLUNITRAZEPAM (FLUNITRAZEPAM) [Concomitant]
  3. ATROPINE [Concomitant]
  4. THIOPENTAL SODIUM [Concomitant]
  5. SUXAMETHONIUM CHLORIDE (SUXAMETHONIUM CHLORIDE) [Concomitant]
  6. PANCURONIUM BROMIDE [Concomitant]
  7. SEVOFLURANE [Concomitant]
  8. FENTANYL [Concomitant]

REACTIONS (8)
  - BRAIN DEATH [None]
  - CARDIAC ARREST [None]
  - DEVICE FAILURE [None]
  - HYPOXIC ENCEPHALOPATHY [None]
  - INADEQUATE ANALGESIA [None]
  - LOSS OF CONSCIOUSNESS [None]
  - PHARMACEUTICAL PRODUCT COMPLAINT [None]
  - RESPIRATORY DEPRESSION [None]
